FAERS Safety Report 4514184-8 (Version None)
Quarter: 2004Q4

REPORT INFORMATION
  Report Type: 
  Country: None (occurrence: None)
  Receive Date: 20041129
  Receipt Date: 20041123
  Transmission Date: 20050328
  Serious: Yes (Death, Other)
  Sender: FDA-Public Use
  Company Number: 04-10-1449

PATIENT
  Age: 61 Year
  Sex: Male
  Weight: 72.5755 kg

DRUGS (17)
  1. CLOZAPINE [Suspect]
     Indication: SCHIZOPHRENIA
     Dosage: 250 MG QHS ORAL
     Route: 048
     Dates: start: 20010101, end: 20041002
  2. BISACODYL [Concomitant]
  3. MILK OF MAGNESIA TAB [Concomitant]
  4. PROMETHAZINE [Concomitant]
  5. ACETAMINOPHEN [Concomitant]
  6. ATIVAN [Concomitant]
  7. URECHOLINE [Concomitant]
  8. AMANTADINE [Concomitant]
  9. ARICEPT [Concomitant]
  10. ASPIRIN [Concomitant]
  11. DEPAKOTE [Concomitant]
  12. SYNTHROID [Concomitant]
  13. LEVAQUIN [Concomitant]
  14. ZITHROMAX [Concomitant]
  15. ALBUTEROL SULFATE [Concomitant]
  16. MIRALAX [Concomitant]
  17. NAMENDA [Concomitant]

REACTIONS (5)
  - ANAEMIA [None]
  - CARDIAC FAILURE CONGESTIVE [None]
  - DISSEMINATED INTRAVASCULAR COAGULATION [None]
  - LEUKOCYTOSIS [None]
  - PNEUMONIA [None]
